FAERS Safety Report 8572978-6 (Version None)
Quarter: 2012Q3

REPORT INFORMATION
  Report Type: 
  Country: None (occurrence: None)
  Receive Date: 20120806
  Receipt Date: 20120726
  Transmission Date: 20120928
  Serious: Yes (Hospitalization)
  Sender: FDA-Public Use
  Company Number: US-ASTRAZENECA-2005UW06293

PATIENT
  Age: 75 Year
  Sex: Female
  Weight: 57.2 kg

DRUGS (10)
  1. CRESTOR [Suspect]
     Indication: BLOOD CHOLESTEROL INCREASED
     Route: 048
  2. OMEPRAZOLE [Suspect]
     Route: 048
  3. CITALOPRAM HYDROBROMIDE [Concomitant]
  4. ASA - LILLY ELI AND COMPANY [Concomitant]
  5. NEXIUM [Suspect]
     Indication: GASTROOESOPHAGEAL REFLUX DISEASE
     Route: 048
  6. SEROQUEL [Suspect]
     Indication: BIPOLAR I DISORDER
     Route: 048
     Dates: start: 20050101
  7. CELEXA - FORSET LABS [Concomitant]
  8. SEROQUEL [Suspect]
     Route: 048
  9. NEXIUM [Suspect]
     Dosage: SOMETIMES TAKES TWICE DAILY
     Route: 048
  10. CELEBREX - SEARLE G.D. + COMPANY [Concomitant]

REACTIONS (12)
  - BLOOD CHOLESTEROL INCREASED [None]
  - SOMNOLENCE [None]
  - INSOMNIA [None]
  - INTENTIONAL DRUG MISUSE [None]
  - DRUG DOSE OMISSION [None]
  - HIATUS HERNIA [None]
  - GASTROOESOPHAGEAL REFLUX DISEASE [None]
  - TACHYPHRENIA [None]
  - VOMITING [None]
  - DREAMY STATE [None]
  - DRUG INEFFECTIVE [None]
  - OFF LABEL USE [None]
